FAERS Safety Report 12548020 (Version 1)
Quarter: 2016Q3

REPORT INFORMATION
  Report Type: Spontaneous
  Country: US (occurrence: US)
  Receive Date: 20160712
  Receipt Date: 20160712
  Transmission Date: 20161109
  Serious: Yes (Other)
  Sender: FDA-Public Use
  Company Number: US-ZYDUS-011561

PATIENT
  Age: 37 Year
  Sex: Male

DRUGS (1)
  1. NAPROXEN. [Suspect]
     Active Substance: NAPROXEN
     Indication: MUSCLE STRAIN
     Route: 065

REACTIONS (11)
  - Iridocyclitis [Unknown]
  - Palatal disorder [Recovered/Resolved]
  - Skin lesion [Recovered/Resolved]
  - Conjunctival hyperaemia [Unknown]
  - Episcleritis [Unknown]
  - Ocular hyperaemia [Unknown]
  - Pruritus [Recovered/Resolved]
  - Lichenoid keratosis [Recovered/Resolved]
  - Fixed drug eruption [Recovered/Resolved]
  - Mouth ulceration [Recovered/Resolved]
  - Skin plaque [Recovered/Resolved]
